FAERS Safety Report 19821829 (Version 1)
Quarter: 2021Q3

REPORT INFORMATION
  Report Type: Spontaneous
  Country: CA (occurrence: CA)
  Receive Date: 20210913
  Receipt Date: 20210913
  Transmission Date: 20211014
  Serious: Yes (Other)
  Sender: FDA-Public Use
  Company Number: CA-ASTRAZENECA-2021A718943

PATIENT
  Sex: Female

DRUGS (50)
  1. BETAMETHASONE VALERATE. [Suspect]
     Active Substance: BETAMETHASONE VALERATE
     Route: 065
  2. BISACODYL. [Suspect]
     Active Substance: BISACODYL
     Route: 065
  3. DESONIDE. [Suspect]
     Active Substance: DESONIDE
     Route: 065
  4. GRAMICIDIN [Suspect]
     Active Substance: GRAMICIDIN
     Route: 065
  5. HYDROMORPHONE HYDROCHLORIDE. [Suspect]
     Active Substance: HYDROMORPHONE HYDROCHLORIDE
     Route: 065
  6. MACROGOL [Suspect]
     Active Substance: POLYETHYLENE GLYCOLS
     Route: 065
  7. MAGNESIUM SULFATE. [Suspect]
     Active Substance: MAGNESIUM SULFATE
     Route: 065
  8. ZEAXANTHIN [Suspect]
     Active Substance: ZEAXANTHIN
     Route: 065
  9. MESALAZINE [Suspect]
     Active Substance: MESALAMINE
     Route: 065
  10. NICOTINE. [Suspect]
     Active Substance: NICOTINE
     Route: 065
  11. TRIAMCINOLONE ACETONIDE. [Suspect]
     Active Substance: TRIAMCINOLONE ACETONIDE
     Route: 014
  12. MUPIROCIN. [Suspect]
     Active Substance: MUPIROCIN
     Route: 065
  13. POLYMYXIN B SULFATE. [Suspect]
     Active Substance: POLYMYXIN B SULFATE
     Route: 065
  14. XANTOFYL PALMITATE [Suspect]
     Active Substance: XANTOFYL PALMITATE
     Route: 065
  15. ACETYLSALICYLIC ACID [Suspect]
     Active Substance: ASPIRIN
     Route: 048
  16. ALPRAZOLAM. [Suspect]
     Active Substance: ALPRAZOLAM
     Route: 065
  17. FLUTICASONE FUROATE [Suspect]
     Active Substance: FLUTICASONE FUROATE
     Route: 065
  18. NADOLOL. [Suspect]
     Active Substance: NADOLOL
     Route: 065
  19. PREGABALIN. [Suspect]
     Active Substance: PREGABALIN
     Route: 065
  20. VITAMIN D3 [Suspect]
     Active Substance: CHOLECALCIFEROL
     Route: 065
  21. VALSARTAN. [Concomitant]
     Active Substance: VALSARTAN
     Route: 065
  22. BUDESONIDE. [Suspect]
     Active Substance: BUDESONIDE
     Indication: PRODUCT USED FOR UNKNOWN INDICATION
     Route: 055
  23. BETAMETHASONE. [Suspect]
     Active Substance: BETAMETHASONE
     Route: 065
  24. DIPHENHYDRAMINE HYDROCHLORIDE. [Suspect]
     Active Substance: DIPHENHYDRAMINE HYDROCHLORIDE
     Route: 065
  25. NICODERM CQ [Suspect]
     Active Substance: NICOTINE
     Route: 065
  26. POTASSIUM CHLORIDE. [Suspect]
     Active Substance: POTASSIUM CHLORIDE
     Route: 065
  27. SODIUM BICARBONATE. [Suspect]
     Active Substance: SODIUM BICARBONATE
     Route: 065
  28. VITAMIN E NOS [Suspect]
     Active Substance: .ALPHA.-TOCOPHEROL
     Route: 065
  29. ZINC OXIDE. [Suspect]
     Active Substance: ZINC OXIDE
     Route: 065
  30. CETIRIZINE HYDROCHLORIDE. [Suspect]
     Active Substance: CETIRIZINE HYDROCHLORIDE
     Route: 065
  31. CLOTRIMAZOLE. [Suspect]
     Active Substance: CLOTRIMAZOLE
     Route: 065
  32. PANTOPRAZOLE [Suspect]
     Active Substance: PANTOPRAZOLE
     Route: 065
  33. REFRESH TEARS [Suspect]
     Active Substance: CARBOXYMETHYLCELLULOSE SODIUM
     Route: 047
  34. CLARITHROMYCIN. [Suspect]
     Active Substance: CLARITHROMYCIN
     Route: 065
  35. CUPRIC OXIDE [Suspect]
     Active Substance: CUPRIC OXIDE
     Route: 065
  36. GLYCEROL [Suspect]
     Active Substance: GLYCERIN
     Route: 048
  37. HUMIRA [Suspect]
     Active Substance: ADALIMUMAB
     Route: 058
  38. METRONIDAZOLE. [Suspect]
     Active Substance: METRONIDAZOLE
     Route: 065
  39. NEOMYCIN SULFATE. [Suspect]
     Active Substance: NEOMYCIN SULFATE
     Route: 065
  40. PREDNISONE. [Suspect]
     Active Substance: PREDNISONE
     Route: 065
  41. ACETAMINOPHEN. [Suspect]
     Active Substance: ACETAMINOPHEN
     Route: 065
  42. ATORVASTATIN CALCIUM. [Suspect]
     Active Substance: ATORVASTATIN CALCIUM
     Route: 065
  43. DIPHENOXYLATE HYDROCHLORIDE/ATROPINE SULFATE [Suspect]
     Active Substance: ATROPINE SULFATE\DIPHENOXYLATE HYDROCHLORIDE
     Route: 048
  44. ERTAPENEM SODIUM [Suspect]
     Active Substance: ERTAPENEM SODIUM
     Route: 065
  45. HYDROCHLOROTHIAZIDE. [Suspect]
     Active Substance: HYDROCHLOROTHIAZIDE
     Route: 005
  46. MORPHINE SULFATE. [Suspect]
     Active Substance: MORPHINE SULFATE
     Route: 065
  47. NICOTINE POLACRILEX [Suspect]
     Active Substance: NICOTINE
     Route: 065
  48. PMS?AZITHROMYCIN [Suspect]
     Active Substance: AZITHROMYCIN ANHYDROUS
     Route: 065
  49. SODIUM CHLORIDE. [Suspect]
     Active Substance: SODIUM CHLORIDE
     Route: 050
  50. SULFAMETHOXAZOLE/TRIMETHOPRIM [Suspect]
     Active Substance: SULFAMETHOXAZOLE\TRIMETHOPRIM
     Route: 065

REACTIONS (2)
  - Macular degeneration [Unknown]
  - Drug ineffective [Unknown]
